FAERS Safety Report 22044272 (Version 3)
Quarter: 2023Q1

REPORT INFORMATION
  Report Type: Spontaneous
  Country: US (occurrence: US)
  Receive Date: 20230228
  Receipt Date: 20230329
  Transmission Date: 20230418
  Serious: Yes (Other)
  Sender: FDA-Public Use
  Company Number: US-PFIZER INC-202300078191

PATIENT
  Age: 78 Year
  Sex: Female
  Weight: 48.99 kg

DRUGS (1)
  1. PREMARIN [Suspect]
     Active Substance: ESTROGENS, CONJUGATED
     Indication: Postmenopause
     Dosage: 1 GRAM EVERY MONDAY AND TUESDAY
     Dates: start: 20230218

REACTIONS (4)
  - Pain [Recovering/Resolving]
  - Device difficult to use [Unknown]
  - Product design issue [Unknown]
  - Off label use [Unknown]

NARRATIVE: CASE EVENT DATE: 20230218
